FAERS Safety Report 25850812 (Version 2)
Quarter: 2025Q4

REPORT INFORMATION
  Report Type: Spontaneous
  Country: EU (occurrence: EU)
  Receive Date: 20250926
  Receipt Date: 20251226
  Transmission Date: 20260117
  Serious: Yes (Other)
  Sender: JOHNSON AND JOHNSON
  Company Number: EU-JNJFOC-20250924572

PATIENT
  Sex: Male
  Weight: 95 kg

DRUGS (8)
  1. RYBREVANT [Suspect]
     Active Substance: AMIVANTAMAB-VMJW
     Indication: Non-small cell lung cancer metastatic
     Dosage: TREATMENT STARTED
  2. RYBREVANT [Suspect]
     Active Substance: AMIVANTAMAB-VMJW
     Dosage: INFUSION 4
  3. RYBREVANT [Suspect]
     Active Substance: AMIVANTAMAB-VMJW
     Dosage: RESUMPTION AFTER THE INTERRUPTION ON 17-FEB-2025
  4. RYBREVANT [Suspect]
     Active Substance: AMIVANTAMAB-VMJW
  5. RYBREVANT [Suspect]
     Active Substance: AMIVANTAMAB-VMJW
  6. RYBREVANT [Suspect]
     Active Substance: AMIVANTAMAB-VMJW
  7. CARBOPLATIN [Concomitant]
     Active Substance: CARBOPLATIN
     Indication: Non-small cell lung cancer
  8. PEMETREXED [Concomitant]
     Active Substance: PEMETREXED
     Indication: Non-small cell lung cancer
     Dosage: AFTER THE INTERRUPTION ON 28-JUL-2025

REACTIONS (2)
  - Skin toxicity [Unknown]
  - Off label use [Unknown]
